FAERS Safety Report 16189988 (Version 1)
Quarter: 2019Q2

REPORT INFORMATION
  Report Type: Spontaneous
  Country: US (occurrence: US)
  Receive Date: 20190412
  Receipt Date: 20190412
  Transmission Date: 20190711
  Serious: Yes (Hospitalization, Other)
  Sender: FDA-Public Use
  Company Number: US-ALKEM LABORATORIES LIMITED-US-ALKEM-2018-11010

PATIENT
  Age: 16 Year
  Sex: Female

DRUGS (11)
  1. QUETIAPINE FUMARATE. [Suspect]
     Active Substance: QUETIAPINE FUMARATE
     Dosage: 600 MG, QD
     Route: 065
     Dates: start: 20080712, end: 20080714
  2. QUETIAPINE FUMARATE. [Suspect]
     Active Substance: QUETIAPINE FUMARATE
     Dosage: 100 MG, TID
     Route: 065
     Dates: start: 20080707, end: 20080710
  3. BUSPIRONE [Concomitant]
     Active Substance: BUSPIRONE HYDROCHLORIDE
     Indication: ANXIETY
     Dosage: 5 MG, BID
     Route: 065
     Dates: start: 20070925, end: 20080613
  4. QUETIAPINE FUMARATE. [Suspect]
     Active Substance: QUETIAPINE FUMARATE
     Indication: INSOMNIA
     Dosage: 25 MG, AT BEDTIME
     Route: 065
     Dates: start: 20070925, end: 20080613
  5. QUETIAPINE FUMARATE. [Suspect]
     Active Substance: QUETIAPINE FUMARATE
     Dosage: 100 MG, AT BEDTIME
     Route: 065
     Dates: start: 20080613, end: 20080707
  6. VALPROIC ACID. [Concomitant]
     Active Substance: VALPROIC ACID
     Indication: BIPOLAR DISORDER
     Dosage: 500 MG, BID
     Route: 065
     Dates: start: 20080613, end: 20080707
  7. QUETIAPINE FUMARATE. [Suspect]
     Active Substance: QUETIAPINE FUMARATE
     Indication: MANIA
     Dosage: 50 MG, EVERY MORNING AND AT NOON
     Route: 065
     Dates: start: 20080613, end: 20080707
  8. SERTRALINE [Concomitant]
     Active Substance: SERTRALINE HYDROCHLORIDE
     Indication: MAJOR DEPRESSION
     Dosage: 50 MG, QD
     Route: 065
     Dates: start: 20070904
  9. QUETIAPINE FUMARATE. [Suspect]
     Active Substance: QUETIAPINE FUMARATE
     Dosage: 400 MG, QD
     Route: 065
     Dates: start: 20080710, end: 20080712
  10. IBUPROFEN. [Suspect]
     Active Substance: IBUPROFEN
     Indication: SUICIDE ATTEMPT
     Dosage: 200 MG, 37 TABLETS
     Route: 065
  11. SERTRALINE [Concomitant]
     Active Substance: SERTRALINE HYDROCHLORIDE
     Dosage: 100 MG, QD
     Route: 065
     Dates: start: 20070925, end: 20080613

REACTIONS (2)
  - Intentional overdose [Unknown]
  - Thrombocytopenia [Recovered/Resolved]
